FAERS Safety Report 15329994 (Version 1)
Quarter: 2018Q3

REPORT INFORMATION
  Report Type: Spontaneous
  Country: US (occurrence: US)
  Receive Date: 20180824
  Receipt Date: 20180824
  Transmission Date: 20181010
  Serious: Yes (Hospitalization)
  Sender: FDA-Public Use
  Company Number: None

PATIENT
  Age: 61 Year
  Sex: Male
  Weight: 60.06 kg

DRUGS (1)
  1. HARVONI [Suspect]
     Active Substance: LEDIPASVIR\SOFOSBUVIR
     Indication: HEPATITIS C
     Route: 048
     Dates: start: 20180127, end: 20180515

REACTIONS (8)
  - Encephalopathy [None]
  - Cough [None]
  - Urinary tract infection [None]
  - Incoherent [None]
  - Abdominal pain [None]
  - Dyspnoea [None]
  - Skin wound [None]
  - Cellulitis [None]

NARRATIVE: CASE EVENT DATE: 20180407
